FAERS Safety Report 16421649 (Version 1)
Quarter: 2019Q2

REPORT INFORMATION
  Report Type: Spontaneous
  Country: US (occurrence: US)
  Receive Date: 20190506
  Receipt Date: 20190506
  Transmission Date: 20190711
  Serious: No
  Sender: FDA-Public Use
  Company Number: None

PATIENT
  Age: 72 Year
  Sex: Female

DRUGS (1)
  1. ADCIRCA [Suspect]
     Active Substance: TADALAFIL
     Indication: PULMONARY HYPERTENSION
     Dates: start: 201903

REACTIONS (7)
  - Thinking abnormal [None]
  - Ear pain [None]
  - Headache [None]
  - Malaise [None]
  - Viral infection [None]
  - Bedridden [None]
  - Therapy cessation [None]

NARRATIVE: CASE EVENT DATE: 20190506
